FAERS Safety Report 6086212-2 (Version None)
Quarter: 2009Q1

REPORT INFORMATION
  Report Type: 
  Country: None (occurrence: None)
  Receive Date: 20090220
  Receipt Date: 20090213
  Transmission Date: 20090719
  Serious: Yes (Other)
  Sender: FDA-Public Use
  Company Number: US-AMGEN-US333834

PATIENT
  Sex: Female

DRUGS (2)
  1. EPOGEN [Suspect]
     Indication: ANAEMIA
     Route: 058
     Dates: start: 20080801
  2. VENOFER [Concomitant]
     Route: 042

REACTIONS (1)
  - THERAPEUTIC RESPONSE DECREASED [None]
